FAERS Safety Report 7187128-0 (Version None)
Quarter: 2010Q4

REPORT INFORMATION
  Report Type: 
  Country: None (occurrence: None)
  Receive Date: 20101222
  Receipt Date: 20101214
  Transmission Date: 20110411
  Serious: Yes (Death)
  Sender: FDA-Public Use
  Company Number: JP-GILEAD-E2B_00000994

PATIENT
  Sex: Male

DRUGS (7)
  1. AMBRISENTAN [Suspect]
     Indication: PULMONARY HYPERTENSION
     Dosage: 2.5MG PER DAY
     Route: 048
     Dates: start: 20101013
  2. PREDONINE [Concomitant]
     Route: 065
  3. NEORAL [Concomitant]
     Route: 048
  4. REVATIO [Concomitant]
     Route: 048
  5. JUVELA [Concomitant]
     Route: 065
  6. FUROSEMIDE [Concomitant]
     Route: 065
  7. WARFARIN [Concomitant]
     Route: 048

REACTIONS (2)
  - CARDIAC FAILURE [None]
  - INTERSTITIAL LUNG DISEASE [None]
